FAERS Safety Report 11462561 (Version 1)
Quarter: 2015Q3

REPORT INFORMATION
  Report Type: Spontaneous
  Country: US (occurrence: US)
  Receive Date: 20150831
  Receipt Date: 20150831
  Transmission Date: 20151125
  Serious: Yes (Other)
  Sender: FDA-Public Use
  Company Number: US-ELI_LILLY_AND_COMPANY-US201011005531

PATIENT
  Sex: Female

DRUGS (2)
  1. CYMBALTA [Suspect]
     Active Substance: DULOXETINE HYDROCHLORIDE
     Indication: DEPRESSION
     Dosage: 30 MG, AS NEEDED
  2. CYMBALTA [Suspect]
     Active Substance: DULOXETINE HYDROCHLORIDE
     Dosage: 30 MG, DAILY (1/D)
     Dates: end: 20101118

REACTIONS (7)
  - Disorientation [Unknown]
  - Visual impairment [Unknown]
  - Diarrhoea [Unknown]
  - Abnormal behaviour [Unknown]
  - Suicidal behaviour [Recovered/Resolved]
  - Suicidal ideation [Unknown]
  - Intentional product misuse [Recovered/Resolved]
